FAERS Safety Report 8845539 (Version 1)
Quarter: 2012Q4

REPORT INFORMATION
  Report Type: 
  Country: US (occurrence: US)
  Receive Date: 20121017
  Receipt Date: 20121017
  Transmission Date: 20130627
  Serious: No
  Sender: FDA-Public Use
  Company Number: US-B.I. PHARMACEUTICALS,INC./RIDGEFIELD-2012-BP-24564BP

PATIENT
  Age: 82 Year
  Sex: Female
  Weight: 68 kg

DRUGS (2)
  1. ZANTAC 75 (RANITIDINE HYDROCHLORIDE) [Suspect]
     Indication: DYSPEPSIA
     Dosage: 150 mg
     Route: 048
     Dates: start: 20121003
  2. ADVIL [Concomitant]
     Indication: ARTHRALGIA
     Dates: start: 201208

REACTIONS (2)
  - Incorrect dose administered [Recovered/Resolved]
  - Dizziness [Recovered/Resolved]
